FAERS Safety Report 14309411 (Version 1)
Quarter: 2017Q4

REPORT INFORMATION
  Report Type: Spontaneous
  Country: IT (occurrence: IT)
  Receive Date: 20171220
  Receipt Date: 20171220
  Transmission Date: 20180321
  Serious: Yes (Other)
  Sender: FDA-Public Use
  Company Number: IT-TEVA-2017-IT-837547

PATIENT
  Age: 54 Year
  Sex: Female

DRUGS (2)
  1. CARBOPLATINO TEVA 10 MG/ML [Suspect]
     Active Substance: CARBOPLATIN
     Indication: OVARIAN CANCER
     Dosage: 400 MG CYCLICAL
     Route: 042
     Dates: start: 20171016, end: 20171016
  2. GEMCITABINA ACCORD 100 MG/ML [Suspect]
     Active Substance: GEMCITABINE HYDROCHLORIDE
     Indication: OVARIAN CANCER
     Dosage: 1200 MG CYCLICAL, CONCENTRATO PER SOLUZIONE PER INFUSIONE
     Route: 042
     Dates: start: 20171016, end: 20171016

REACTIONS (7)
  - Pyrexia [Unknown]
  - Abdominal pain [Unknown]
  - Hypocalcaemia [Unknown]
  - Hypokalaemia [None]
  - Thrombocytopenia [Unknown]
  - Asthenia [Unknown]
  - Presyncope [Unknown]

NARRATIVE: CASE EVENT DATE: 20171023
